FAERS Safety Report 10376525 (Version 1)
Quarter: 2014Q3

REPORT INFORMATION
  Report Type: Spontaneous
  Country: US (occurrence: None)
  Receive Date: 20140807
  Receipt Date: 20140807
  Transmission Date: 20150326
  Serious: Yes (Death)
  Sender: FDA-Public Use
  Company Number: CIO14052135

PATIENT
  Sex: Male

DRUGS (1)
  1. METAMUCIL [Suspect]
     Active Substance: PLANTAGO SEED
     Route: 048
     Dates: end: 20140331

REACTIONS (5)
  - Wrong technique in drug usage process [None]
  - Feeling cold [None]
  - Choking [None]
  - Respiratory arrest [None]
  - Incorrect dose administered [None]

NARRATIVE: CASE EVENT DATE: 20140331
